FAERS Safety Report 7530739-0 (Version None)
Quarter: 2011Q2

REPORT INFORMATION
  Report Type: 
  Country: None (occurrence: None)
  Receive Date: 20110607
  Receipt Date: 20110524
  Transmission Date: 20111010
  Serious: Yes (Other)
  Sender: FDA-Public Use
  Company Number: US-JUTA GMBH-2011-07155

PATIENT
  Age: 9 Year
  Sex: Male

DRUGS (2)
  1. AMLODIPINE [Suspect]
     Indication: HYPERTENSION
  2. HYDROCHLOROTHIAZIDE [Concomitant]

REACTIONS (1)
  - NEUROFIBROMATOSIS [None]
